FAERS Safety Report 6768789-4 (Version None)
Quarter: 2010Q2

REPORT INFORMATION
  Report Type: 
  Country: None (occurrence: None)
  Receive Date: 20100614
  Receipt Date: 20100610
  Transmission Date: 20101027
  Serious: Yes (Death, Other)
  Sender: FDA-Public Use
  Company Number: ZA-ABBOTT-10P-143-0650007-00

PATIENT
  Age: 30 Year
  Sex: Male

DRUGS (4)
  1. ALUVIA TABLETS [Suspect]
     Indication: ACQUIRED IMMUNODEFICIENCY SYNDROME
     Route: 048
  2. EPILIM TABLETS [Suspect]
     Indication: CONVULSION
     Route: 048
  3. RIFAFOUR [Interacting]
     Indication: DRUG USE FOR UNKNOWN INDICATION
     Dosage: 150MG/75MG/400MG/275MG
     Route: 048
  4. PHENYOTIN [Concomitant]
     Indication: CONVULSION
     Route: 048

REACTIONS (5)
  - ACQUIRED IMMUNODEFICIENCY SYNDROME [None]
  - CONVULSION [None]
  - DRUG INTERACTION [None]
  - DRUG LEVEL DECREASED [None]
  - MULTI-ORGAN FAILURE [None]
